FAERS Safety Report 7726952-X (Version None)
Quarter: 2011Q3

REPORT INFORMATION
  Report Type: 
  Country: None (occurrence: None)
  Receive Date: 20110902
  Receipt Date: 20110829
  Transmission Date: 20111222
  Serious: Yes (Other)
  Sender: FDA-Public Use
  Company Number: CA-PFIZER INC-2011200668

PATIENT
  Sex: Female

DRUGS (4)
  1. XALATAN [Suspect]
     Indication: GLAUCOMA
     Dosage: 1 GTT IN BOTH EYES, 1X/DAY
     Route: 047
     Dates: start: 20110101
  2. CIPRODEX [Concomitant]
     Indication: EAR INFECTION
     Dosage: 4 GTT IN THE LEFT EAR, 2X/DAY
     Route: 001
     Dates: start: 20110827
  3. CALCIUM [Concomitant]
     Indication: BONE DISORDER
     Dosage: 600 MG, 2X/DAY
     Route: 048
  4. VITAMIN TAB [Concomitant]
     Indication: SUPPLEMENTATION THERAPY
     Dosage: 400 IU, UNK

REACTIONS (1)
  - EAR INFECTION [None]
